FAERS Safety Report 13412060 (Version 3)
Quarter: 2019Q4

REPORT INFORMATION
  Report Type: Spontaneous
  Country: US (occurrence: US)
  Receive Date: 20170406
  Receipt Date: 20191217
  Transmission Date: 20200122
  Serious: Yes (Other)
  Sender: FDA-Public Use
  Company Number: US-JNJFOC-20170314156

PATIENT
  Age: 26 Year
  Sex: Male

DRUGS (4)
  1. RISPERDAL [Suspect]
     Active Substance: RISPERIDONE
     Indication: BIPOLAR DISORDER
     Dosage: VARYING DOSES OF 0.5 MG AND 3 MG
     Route: 048
     Dates: start: 20120203, end: 20120628
  2. RISPERDAL [Suspect]
     Active Substance: RISPERIDONE
     Route: 048
     Dates: start: 20140117, end: 20141212
  3. RISPERDAL [Suspect]
     Active Substance: RISPERIDONE
     Indication: PRODUCT USED FOR UNKNOWN INDICATION
     Route: 048
     Dates: start: 20120203, end: 20130317
  4. RISPERDAL CONSTA [Suspect]
     Active Substance: RISPERIDONE
     Indication: BIPOLAR DISORDER
     Dosage: VARYING DOSES OF 12.5 MG, 25 MG AND 50 MG
     Route: 030
     Dates: start: 20120628, end: 20141212

REACTIONS (4)
  - Fatigue [Unknown]
  - Gynaecomastia [Unknown]
  - Emotional distress [Unknown]
  - Therapy cessation [Unknown]

NARRATIVE: CASE EVENT DATE: 2012
